FAERS Safety Report 7519037-9 (Version None)
Quarter: 2011Q2

REPORT INFORMATION
  Report Type: 
  Country: None (occurrence: None)
  Receive Date: 20110602
  Receipt Date: 20110519
  Transmission Date: 20111010
  Serious: Yes (Life-Threatening, Hospitalization)
  Sender: FDA-Public Use
  Company Number: US-JNJFOC-20110102897

PATIENT
  Sex: Female
  Weight: 59.42 kg

DRUGS (12)
  1. INFLIXIMAB, RECOMBINANT [Suspect]
     Route: 042
     Dates: start: 20030714
  2. CIMZIA [Concomitant]
  3. INFLIXIMAB, RECOMBINANT [Suspect]
     Route: 042
     Dates: start: 20030324
  4. INFLIXIMAB, RECOMBINANT [Suspect]
     Route: 042
     Dates: start: 20030908
  5. STEROIDS NOS [Concomitant]
     Indication: PREMEDICATION
     Dates: start: 20030127, end: 20040602
  6. INFLIXIMAB, RECOMBINANT [Suspect]
     Route: 042
     Dates: start: 20031213
  7. INFLIXIMAB, RECOMBINANT [Suspect]
     Route: 042
     Dates: start: 20040406
  8. INFLIXIMAB, RECOMBINANT [Suspect]
     Route: 042
     Dates: start: 20030127
  9. ANTIHISTAMINES [Concomitant]
     Indication: PREMEDICATION
     Dates: start: 20040729, end: 20040729
  10. INFLIXIMAB, RECOMBINANT [Suspect]
     Indication: CROHN'S DISEASE
     Route: 042
     Dates: start: 20030519
  11. INFLIXIMAB, RECOMBINANT [Suspect]
     Route: 042
     Dates: start: 20040602
  12. INFLIXIMAB, RECOMBINANT [Suspect]
     Route: 042
     Dates: start: 20040729

REACTIONS (2)
  - MENINGIOMA BENIGN [None]
  - CONVULSION [None]
